FAERS Safety Report 4317501-7 (Version None)
Quarter: 2004Q1

REPORT INFORMATION
  Report Type: 
  Country: None (occurrence: None)
  Receive Date: 20040312
  Receipt Date: 20040301
  Transmission Date: 20041129
  Serious: Yes (Life-Threatening)
  Sender: FDA-Public Use
  Company Number: IN-JNJFOC-20040300720

PATIENT
  Age: 46 Year
  Sex: Male

DRUGS (4)
  1. REOPRO [Suspect]
     Indication: ANGIOPLASTY
     Dosage: INTRAVENOUS
     Route: 042
     Dates: start: 20040220, end: 20040221
  2. CLOPIDOGREL BISULFATE [Concomitant]
  3. ASPIRIN [Concomitant]
  4. LOW MOLECULAR WEIGHT HEPARIN (HEPARIN SODIUM) [Concomitant]

REACTIONS (5)
  - EPISTAXIS [None]
  - GASTROINTESTINAL HAEMORRHAGE [None]
  - MOUTH HAEMORRHAGE [None]
  - PULMONARY HAEMORRHAGE [None]
  - VENTRICULAR DYSFUNCTION [None]
